FAERS Safety Report 5106122-4 (Version None)
Quarter: 2006Q3

REPORT INFORMATION
  Report Type: 
  Country: None (occurrence: None)
  Receive Date: 20060911
  Receipt Date: 20060830
  Transmission Date: 20061208
  Serious: Yes (Hospitalization)
  Sender: FDA-Public Use
  Company Number: HQWYE182931AUG06

PATIENT
  Age: 8 Day
  Sex: Female
  Weight: 2.72 kg

DRUGS (5)
  1. EFFEXOR XR [Suspect]
     Indication: ANXIETY
     Dosage: 225 M G 1X PER 1 DAY, TRANSPLACENTAL
     Route: 064
  2. EFFEXOR XR [Suspect]
     Indication: DEPRESSION
     Dosage: 225 M G 1X PER 1 DAY, TRANSPLACENTAL
     Route: 064
  3. EFFEXOR XR [Suspect]
     Indication: PANIC DISORDER
     Dosage: 225 M G 1X PER 1 DAY, TRANSPLACENTAL
     Route: 064
  4. ZOFRAN [Concomitant]
  5. UNSPECIFIED VITAMINS (UNSPECIFIED VITAMINS) [Concomitant]

REACTIONS (11)
  - BRAIN DAMAGE [None]
  - CEREBROVASCULAR ACCIDENT [None]
  - CONVULSION NEONATAL [None]
  - CRYING [None]
  - DRUG EXPOSURE DURING PREGNANCY [None]
  - FEEDING DISORDER NEONATAL [None]
  - HYPOKINESIA NEONATAL [None]
  - ISCHAEMIA [None]
  - NEONATAL ANOXIA [None]
  - NEONATAL DISORDER [None]
  - NEONATAL RESPIRATORY ARREST [None]
